FAERS Safety Report 6449712-9 (Version None)
Quarter: 2009Q4

REPORT INFORMATION
  Report Type: 
  Country: None (occurrence: None)
  Receive Date: 20091120
  Receipt Date: 20091111
  Transmission Date: 20100525
  Serious: Yes (Death)
  Sender: FDA-Public Use
  Company Number: IR-GENENTECH-291096

PATIENT
  Sex: Female

DRUGS (1)
  1. MABTHERA [Suspect]
     Indication: SYSTEMIC LUPUS ERYTHEMATOSUS
     Dosage: 500 MG, DAYS 1+14
     Route: 042
     Dates: start: 20090701, end: 20090701

REACTIONS (2)
  - ANAL ABSCESS [None]
  - THROMBOTIC THROMBOCYTOPENIC PURPURA [None]
